FAERS Safety Report 6793918-6 (Version None)
Quarter: 2010Q2

REPORT INFORMATION
  Report Type: 
  Country: None (occurrence: None)
  Receive Date: 20100624
  Receipt Date: 20090310
  Transmission Date: 20101027
  Serious: No
  Sender: FDA-Public Use
  Company Number: US-PFIZER INC-2009181517

PATIENT
  Sex: Male

DRUGS (2)
  1. CALAN [Suspect]
     Indication: TACHYCARDIA
  2. VERAPAMIL HCL [Suspect]
     Indication: TACHYCARDIA

REACTIONS (1)
  - TACHYCARDIA [None]
